FAERS Safety Report 7096098-5 (Version None)
Quarter: 2010Q4

REPORT INFORMATION
  Report Type: 
  Country: None (occurrence: None)
  Receive Date: 20101111
  Receipt Date: 20101101
  Transmission Date: 20110411
  Serious: Yes (Other)
  Sender: FDA-Public Use
  Company Number: US-ROCHE-718672

PATIENT
  Sex: Female
  Weight: 56.7 kg

DRUGS (5)
  1. ACCUTANE [Suspect]
     Route: 048
     Dates: start: 19960101
  2. ACCUTANE [Suspect]
     Route: 048
     Dates: start: 19970403, end: 19970728
  3. ACCUTANE [Suspect]
     Route: 048
     Dates: start: 19990101, end: 19990101
  4. TRINESSA [Concomitant]
  5. ORTHO TRI-CYCLEN [Concomitant]

REACTIONS (10)
  - BACK PAIN [None]
  - COLITIS ULCERATIVE [None]
  - GASTROINTESTINAL INJURY [None]
  - GENITAL HERPES [None]
  - HEADACHE [None]
  - INFLAMMATORY BOWEL DISEASE [None]
  - NASAL DRYNESS [None]
  - NECK PAIN [None]
  - NEPHROLITHIASIS [None]
  - POSTOPERATIVE WOUND INFECTION [None]
